FAERS Safety Report 22248740 (Version 5)
Quarter: 2025Q1

REPORT INFORMATION
  Report Type: Spontaneous
  Country: CA (occurrence: CA)
  Receive Date: 20230425
  Receipt Date: 20250214
  Transmission Date: 20250409
  Serious: Yes (Other)
  Sender: AUROBINDO
  Company Number: CA-AUROBINDO-AUR-APL-2022-030686

PATIENT
  Age: 29 Year
  Sex: Female

DRUGS (22)
  1. FUROSEMIDE [Suspect]
     Active Substance: FUROSEMIDE
     Indication: Pulmonary hypertension
     Dosage: 10 MILLIGRAM, TWO TIMES A DAY
     Route: 042
  2. FUROSEMIDE [Suspect]
     Active Substance: FUROSEMIDE
     Indication: Pulmonary oedema
  3. FUROSEMIDE [Suspect]
     Active Substance: FUROSEMIDE
     Indication: Pulmonary hypertension
     Route: 065
  4. FUROSEMIDE [Suspect]
     Active Substance: FUROSEMIDE
     Indication: Pulmonary oedema
  5. GABAPENTIN [Suspect]
     Active Substance: GABAPENTIN
     Indication: Vomiting
     Dosage: 100 MILLIGRAM, ONCE A DAY
     Route: 048
  6. GABAPENTIN [Suspect]
     Active Substance: GABAPENTIN
     Indication: Hyperemesis gravidarum
  7. MIRTAZAPINE [Suspect]
     Active Substance: MIRTAZAPINE
     Indication: Vomiting
     Dosage: 15 MILLIGRAM, ONCE A DAY AT BED TIME
     Route: 048
  8. MIRTAZAPINE [Suspect]
     Active Substance: MIRTAZAPINE
     Indication: Hyperemesis gravidarum
  9. ONDANSETRON [Suspect]
     Active Substance: ONDANSETRON
     Indication: Hyperemesis gravidarum
     Route: 065
  10. ASPIRIN [Suspect]
     Active Substance: ASPIRIN
     Indication: Pre-eclampsia
     Dosage: 162 MILLIGRAM, ONCE A DAY AT BEDTIME
     Route: 048
  11. ASPIRIN [Suspect]
     Active Substance: ASPIRIN
     Indication: Prophylaxis
  12. BETAMETHASONE [Suspect]
     Active Substance: BETAMETHASONE
     Indication: Pre-eclampsia
     Route: 065
  13. BETAMETHASONE [Suspect]
     Active Substance: BETAMETHASONE
     Indication: Maternal therapy to enhance foetal lung maturity
  14. HEPARIN [Suspect]
     Active Substance: HEPARIN SODIUM
     Indication: Thrombosis prophylaxis
     Dosage: 5000 INTERNATIONAL UNIT, TWO TIMES A DAY
     Route: 058
  15. INSULIN NOS [Suspect]
     Active Substance: INSULIN NOS
     Indication: Type 1 diabetes mellitus
     Route: 048
  16. LABETALOL [Suspect]
     Active Substance: LABETALOL
     Indication: Blood pressure management
     Route: 065
  17. LABETALOL [Suspect]
     Active Substance: LABETALOL
     Indication: Pulmonary hypertension
  18. METOCLOPRAMIDE [Suspect]
     Active Substance: METOCLOPRAMIDE
     Indication: Hyperemesis gravidarum
     Route: 065
  19. NIFEDIPINE [Suspect]
     Active Substance: NIFEDIPINE
     Indication: Blood pressure increased
     Dosage: 30 MILLIGRAM, ONCE A DAY
     Route: 048
  20. NIFEDIPINE [Suspect]
     Active Substance: NIFEDIPINE
     Indication: Pulmonary hypertension
  21. NIFEDIPINE [Suspect]
     Active Substance: NIFEDIPINE
     Indication: Blood pressure management
     Dosage: 30 MILLIGRAM, ONCE A DAY
     Route: 048
  22. OXYTOCIN [Suspect]
     Active Substance: OXYTOCIN
     Indication: Prophylaxis
     Route: 065

REACTIONS (8)
  - Live birth [Unknown]
  - Contraindicated product administered [Unknown]
  - Drug ineffective [Unknown]
  - Product use in unapproved indication [Unknown]
  - Premature delivery [Recovered/Resolved]
  - Maternal exposure during pregnancy [Recovered/Resolved]
  - Therapy non-responder [Recovered/Resolved]
  - Off label use [Recovered/Resolved]
